FAERS Safety Report 9374474 (Version 2)
Quarter: 2013Q3

REPORT INFORMATION
  Report Type: Spontaneous
  Country: US (occurrence: US)
  Receive Date: 20130628
  Receipt Date: 20130823
  Transmission Date: 20140515
  Serious: Yes (Other)
  Sender: FDA-Public Use
  Company Number: US-ASTELLAS-2013US006748

PATIENT
  Age: 78 Year
  Sex: Male

DRUGS (29)
  1. MYRBETRIQ [Concomitant]
     Indication: MICTURITION URGENCY
     Dosage: 25 MG, UID/QD
     Route: 065
  2. NAMENDA [Concomitant]
     Indication: DEMENTIA ALZHEIMER^S TYPE
     Dosage: 10 MG, BID
     Route: 065
  3. REQUIP [Concomitant]
     Indication: PARKINSON^S DISEASE
     Dosage: 4 MG, BID
     Route: 065
  4. SEROQUEL [Concomitant]
     Indication: HALLUCINATION
     Dosage: 25 MG, UID/QD
     Route: 065
  5. ZOCOR [Concomitant]
     Indication: BLOOD CHOLESTEROL
     Dosage: 10 MG, UID/QD
     Route: 065
  6. STALEVO [Concomitant]
     Indication: PARKINSON^S DISEASE
     Dosage: 150 MG, UNKNOWN/D
     Route: 065
  7. FLOMAX RELIEF MR [Concomitant]
     Indication: MICTURITION DISORDER
     Dosage: 0.4 MG, UID/QD
     Route: 065
  8. VANTAS [Concomitant]
     Indication: PROSTATE CANCER
     Dosage: UNK
     Route: 065
  9. VESICARE [Concomitant]
     Indication: MICTURITION URGENCY
     Dosage: 4 MG, UID/QD
     Route: 065
  10. ASPIRIN [Concomitant]
     Indication: ANTICOAGULANT THERAPY
     Dosage: 85 MG, UID/QD
     Route: 065
  11. CALCIUM +VIT D [Concomitant]
     Indication: BONE DISORDER
     Dosage: UNK
     Route: 065
  12. UBIQUINOL CO Q10 [Concomitant]
     Indication: PARKINSON^S DISEASE
     Dosage: 500 MG, TOTAL DOSE
     Route: 065
  13. UBIQUINOL CO Q10 [Concomitant]
     Indication: CARDIAC DISORDER
  14. UBIQUINOL CO Q10 [Concomitant]
     Indication: PERIODONTAL DISEASE
  15. DOCUSATE SODIUM [Concomitant]
     Indication: FAECES HARD
     Dosage: 200 MG, PRN
     Route: 065
  16. FISH OIL [Concomitant]
     Indication: ANTIOXIDANT THERAPY
     Dosage: 1000 MG, UID/QD
     Route: 065
  17. GELATIN [Concomitant]
     Indication: NAIL DISORDER
     Dosage: 10 UNK, BID
     Route: 065
  18. DAILY MULTIVITAMIN [Concomitant]
     Indication: VITAMIN SUPPLEMENTATION
     Dosage: UNK
     Route: 065
  19. POLYETHYLENE GLYCOL [Concomitant]
     Indication: LAXATIVE SUPPORTIVE CARE
     Dosage: 17 G, UID/QD
     Route: 065
  20. METAMUCIL                          /00091301/ [Concomitant]
     Indication: PRODUCT USED FOR UNKNOWN INDICATION
     Dosage: UNK
     Route: 065
  21. TURMERIC                           /01079601/ [Concomitant]
     Indication: MEMORY IMPAIRMENT
     Dosage: UNK
     Route: 065
  22. XTANDI [Suspect]
     Indication: PROSTATE CANCER
     Dosage: 160 MG, UID/QD
     Route: 048
     Dates: start: 20130509
  23. CARBIDOPA-LEVODOPA [Suspect]
     Indication: PARKINSON^S DISEASE
     Dosage: UNK
     Route: 065
  24. FOSAMAX [Concomitant]
     Indication: BONE LOSS
     Dosage: 70 MG, WEEKLY
     Route: 065
  25. AZILECT [Concomitant]
     Indication: PRODUCT USED FOR UNKNOWN INDICATION
     Dosage: .5 MG, UID/QD
     Route: 065
  26. CELEBREX [Concomitant]
     Indication: BACK PAIN
     Dosage: 200 MG, PRN
     Route: 065
  27. EXELON                             /01383201/ [Concomitant]
     Indication: MEMORY IMPAIRMENT
     Dosage: 9.5 MG, UID/QD
     Route: 061
  28. COZAAR [Concomitant]
     Indication: BLOOD PRESSURE
     Dosage: 50 MG, UID/QD
     Route: 065
  29. GLUCOPHAGE [Concomitant]
     Indication: BLOOD GLUCOSE ABNORMAL
     Dosage: 500 MG, BID
     Route: 065

REACTIONS (5)
  - Hallucination [Not Recovered/Not Resolved]
  - Asthenia [Not Recovered/Not Resolved]
  - Fatigue [Not Recovered/Not Resolved]
  - Back pain [Recovered/Resolved]
  - Parkinson^s disease [Not Recovered/Not Resolved]
